FAERS Safety Report 5743335-2 (Version None)
Quarter: 2008Q2

REPORT INFORMATION
  Report Type: 
  Country: None (occurrence: None)
  Receive Date: 20080519
  Receipt Date: 20080512
  Transmission Date: 20081010
  Serious: Yes (Hospitalization)
  Sender: FDA-Public Use
  Company Number: JP-PFIZER INC-2008041140

PATIENT
  Sex: Male

DRUGS (2)
  1. SOLANAX [Suspect]
  2. MYSLEE [Suspect]

REACTIONS (2)
  - COMA [None]
  - OVERDOSE [None]
